FAERS Safety Report 5213975-8 (Version None)
Quarter: 2007Q1

REPORT INFORMATION
  Report Type: 
  Country: None (occurrence: None)
  Receive Date: 20070122
  Receipt Date: 20070112
  Transmission Date: 20070707
  Serious: Yes (Hospitalization)
  Sender: FDA-Public Use
  Company Number: US-JNJFOC-20070103414

PATIENT
  Age: 51 Year
  Sex: Female

DRUGS (12)
  1. DURAGESIC-100 [Suspect]
     Indication: INTENTIONAL DRUG MISUSE
     Route: 065
  2. OTHER TYPE OF SEDATIVE/HYPNOTIC/ANTI-ANXIETY OR ANTI-PSYCHOTIC DRUG [Suspect]
     Indication: INTENTIONAL DRUG MISUSE
     Route: 048
  3. BUTALBITAL [Suspect]
     Indication: INTENTIONAL DRUG MISUSE
     Route: 065
  4. CYCLOBENAZPRINE [Concomitant]
     Route: 065
  5. NABUMETONE [Concomitant]
     Route: 065
  6. DULOXETINE [Concomitant]
     Route: 065
  7. HYDROCODONE BITARTRATE AND ACETAMINOPHEN [Concomitant]
     Route: 065
  8. ANTICONVULSANT [Concomitant]
     Route: 065
  9. CLONAZEPAM [Concomitant]
     Route: 065
  10. BENZODIAZEPINE [Concomitant]
  11. OTHER ANTIDEPRESSANT [Concomitant]
  12. OTHER MISCELLANEOUS PRESCRIPTION [Concomitant]

REACTIONS (4)
  - COMA [None]
  - HYPERTENSION [None]
  - MULTIPLE DRUG OVERDOSE [None]
  - PNEUMONIA ASPIRATION [None]
